FAERS Safety Report 6127692-3 (Version None)
Quarter: 2009Q1

REPORT INFORMATION
  Report Type: 
  Country: None (occurrence: None)
  Receive Date: 20090323
  Receipt Date: 20090313
  Transmission Date: 20090719
  Serious: Yes (Other)
  Sender: FDA-Public Use
  Company Number: US-JNJFOC-20081005839

PATIENT
  Sex: Male
  Weight: 20.87 kg

DRUGS (7)
  1. TYLENOL [Suspect]
     Route: 048
  2. TYLENOL [Suspect]
     Indication: HEADACHE
     Route: 048
  3. TYLENOL [Suspect]
     Indication: PYREXIA
     Route: 048
  4. ROBITUSSIN [Suspect]
     Indication: HEADACHE
  5. ROBITUSSIN [Suspect]
     Indication: PYREXIA
  6. TRIAMINIC [Suspect]
     Indication: HEADACHE
  7. TYLENOL [Concomitant]

REACTIONS (1)
  - HYPERSENSITIVITY [None]
